FAERS Safety Report 6152324-8 (Version None)
Quarter: 2009Q2

REPORT INFORMATION
  Report Type: 
  Country: None (occurrence: None)
  Receive Date: 20090413
  Receipt Date: 20070509
  Transmission Date: 20091009
  Serious: Yes (Hospitalization, Other)
  Sender: FDA-Public Use
  Company Number: US-ASTRAZENECA-2006UW22562

PATIENT
  Age: 17205 Day
  Sex: Female
  Weight: 53.1 kg

DRUGS (32)
  1. SEROQUEL [Suspect]
     Indication: ANXIETY
     Dosage: 25-125 MG
     Route: 048
     Dates: start: 20020522
  2. SEROQUEL [Suspect]
     Indication: DEPRESSION
     Dosage: 25-125 MG
     Route: 048
     Dates: start: 20020522
  3. SEROQUEL [Suspect]
     Indication: PANIC ATTACK
     Dosage: 25-125 MG
     Route: 048
     Dates: start: 20020522
  4. ABILIFY [Concomitant]
  5. NEURONTIN [Concomitant]
  6. METHYLIN [Concomitant]
  7. PROZAC [Concomitant]
  8. BUSPAR [Concomitant]
  9. ATIVAN [Concomitant]
  10. WELLBUTRIN [Concomitant]
  11. LORAZEPAM [Concomitant]
  12. AMITRIPTYLINE HCL [Concomitant]
  13. DOXYCYCLINE [Concomitant]
  14. DILAUDID [Concomitant]
  15. AMBIEN [Concomitant]
  16. PRILOSEC [Concomitant]
  17. OXYCODONE HCL [Concomitant]
  18. ASTELIN [Concomitant]
  19. CLONAZEPAM [Concomitant]
  20. CYCLOBENAZAPRINE HCL [Concomitant]
  21. METROGEL-VAGINAL [Concomitant]
  22. LAMISIL [Concomitant]
  23. VIOKASE [Concomitant]
  24. PROTONIX [Concomitant]
  25. MECLIZINE HCL [Concomitant]
  26. DIFLUCAN [Concomitant]
  27. VIOXX [Concomitant]
  28. ESTRADIOL [Concomitant]
  29. ESTRIOL [Concomitant]
  30. PROGESTERONE [Concomitant]
  31. ENDODAN [Concomitant]
  32. PAXIL [Concomitant]

REACTIONS (26)
  - ABDOMINAL PAIN [None]
  - AORTIC ANEURYSM [None]
  - ARTHRALGIA [None]
  - ATROPHIC VULVOVAGINITIS [None]
  - BENIGN GASTRIC NEOPLASM [None]
  - BILIARY DYSKINESIA [None]
  - BREAST DISCHARGE [None]
  - BUNION [None]
  - CHEST PAIN [None]
  - CONTUSION [None]
  - CONVULSION [None]
  - DIABETES MELLITUS [None]
  - HEADACHE [None]
  - HEPATITIS VIRAL [None]
  - HYPOVOLAEMIA [None]
  - LYMPHADENOPATHY [None]
  - MEMORY IMPAIRMENT [None]
  - METATARSALGIA [None]
  - NECK INJURY [None]
  - PAINFUL RESPIRATION [None]
  - PANCREATITIS [None]
  - PANCREATITIS ACUTE [None]
  - ROAD TRAFFIC ACCIDENT [None]
  - SYNCOPE [None]
  - VULVOVAGINAL MYCOTIC INFECTION [None]
  - WEIGHT DECREASED [None]
